FAERS Safety Report 10050191 (Version 1)
Quarter: 2014Q2

REPORT INFORMATION
  Report Type: Spontaneous
  Country: BR (occurrence: BR)
  Receive Date: 20140401
  Receipt Date: 20140401
  Transmission Date: 20141212
  Serious: Yes (Other)
  Sender: FDA-Public Use
  Company Number: BR-PFIZER INC-2014086875

PATIENT
  Age: 67 Year
  Sex: Male
  Weight: 75 kg

DRUGS (5)
  1. FRONTAL [Suspect]
     Indication: SLEEP DISORDER
     Dosage: 1 TABLET (1MG) AT NIGHT
     Route: 048
     Dates: start: 2007
  2. CLOPIDOGREL [Concomitant]
     Indication: PERIPHERAL VASCULAR DISORDER
     Dosage: 1 TABLET DAILY
     Dates: start: 2009
  3. CRESTOR [Concomitant]
     Indication: BLOOD CHOLESTEROL ABNORMAL
     Dosage: 1 TABLET DAILY
     Dates: start: 2009
  4. METTA [Concomitant]
     Indication: BLOOD GLUCOSE ABNORMAL
     Dosage: 1 TABLET DAILY
     Dates: start: 2009
  5. OMEPRAZOLE [Concomitant]
     Indication: PROPHYLAXIS
     Dosage: 1 TABLET DAILY
     Dates: start: 2008

REACTIONS (3)
  - Myocardial infarction [Unknown]
  - Diabetes mellitus [Unknown]
  - Off label use [Unknown]
